FAERS Safety Report 11123745 (Version 1)
Quarter: 2015Q2

REPORT INFORMATION
  Report Type: Spontaneous
  Country: BE (occurrence: BE)
  Receive Date: 20150519
  Receipt Date: 20150519
  Transmission Date: 20150821
  Serious: Yes (Other)
  Sender: FDA-Public Use
  Company Number: BE-JNJFOC-20150508226

PATIENT
  Age: 89 Year
  Sex: Female

DRUGS (7)
  1. ACETAMINOPHEN. [Concomitant]
     Active Substance: ACETAMINOPHEN
     Indication: PRODUCT USED FOR UNKNOWN INDICATION
     Route: 065
  2. MICONAZOLE [Suspect]
     Active Substance: MICONAZOLE
     Indication: CANDIDA INFECTION
     Route: 048
  3. ATENOLOL. [Concomitant]
     Active Substance: ATENOLOL
     Indication: PRODUCT USED FOR UNKNOWN INDICATION
     Route: 065
  4. OMEPRAZOLE. [Concomitant]
     Active Substance: OMEPRAZOLE
     Indication: PRODUCT USED FOR UNKNOWN INDICATION
     Route: 065
  5. PREDNISOLONE. [Concomitant]
     Active Substance: PREDNISOLONE
     Indication: PRODUCT USED FOR UNKNOWN INDICATION
     Route: 065
  6. MICONAZOLE [Suspect]
     Active Substance: MICONAZOLE
     Route: 048
  7. WARFARIN [Interacting]
     Active Substance: WARFARIN
     Indication: CARDIAC VALVE PROSTHESIS USER
     Route: 048

REACTIONS (7)
  - Anaemia [Unknown]
  - Rectal haemorrhage [Unknown]
  - Drug interaction [Unknown]
  - Haematuria [Unknown]
  - Haemorrhage [Unknown]
  - Ecchymosis [Unknown]
  - International normalised ratio increased [Unknown]
